FAERS Safety Report 13980407 (Version 1)
Quarter: 2017Q3

REPORT INFORMATION
  Report Type: Report from Study
  Country: JP (occurrence: JP)
  Receive Date: 20170918
  Receipt Date: 20170918
  Transmission Date: 20171128
  Serious: Yes (Other)
  Sender: FDA-Public Use
  Company Number: JP-ROCHE-1306376

PATIENT

DRUGS (7)
  1. TEGAFUR/URACIL [Suspect]
     Active Substance: TEGAFUR\URACIL
     Indication: COLORECTAL CANCER METASTATIC
     Dosage: 300-600 MG/DAY (BASED ON BODY SURFACE AREA) FOR 3 WEEKS, FOLLOWED BY A 7-DAY BREAK
     Route: 048
  2. FOLINIC ACID [Suspect]
     Active Substance: LEUCOVORIN
     Indication: COLORECTAL CANCER METASTATIC
     Route: 048
  3. BEVACIZUMAB. [Suspect]
     Active Substance: BEVACIZUMAB
     Indication: COLORECTAL CANCER METASTATIC
     Dosage: OVER 30-90 MIN, ON DAY 1 AND 15 EVERY 4 WEEKS
     Route: 042
  4. FLUOROURACIL. [Suspect]
     Active Substance: FLUOROURACIL
     Indication: COLORECTAL CANCER METASTATIC
     Dosage: DAYS 1 AND 15 OF EACH 4-WEEK CHEMOTHERAPY CYCLE
     Route: 040
  5. FOLINIC ACID [Suspect]
     Active Substance: LEUCOVORIN
     Indication: COLORECTAL CANCER METASTATIC
     Dosage: OVER 2 HOURS, ON DAY 1 AND 15, EVERY 4 WEEKS
     Route: 042
  6. IRINOTECAN [Suspect]
     Active Substance: IRINOTECAN
     Indication: COLORECTAL CANCER METASTATIC
     Dosage: OVER 2 HOURS, ON DAY 1 AND 15, EVERY 4 WEEKS
     Route: 042
  7. FLUOROURACIL. [Suspect]
     Active Substance: FLUOROURACIL
     Dosage: DAYS 1 AND 15 OF EACH 4-WEEK CHEMOTHERAPY CYCLE
     Route: 042

REACTIONS (10)
  - Stomatitis [Unknown]
  - Fatigue [Unknown]
  - Decreased appetite [Unknown]
  - Diarrhoea [Unknown]
  - Nausea [Unknown]
  - Anaemia [Unknown]
  - Vomiting [Unknown]
  - Leukopenia [Unknown]
  - Neutropenia [Unknown]
  - Proteinuria [Unknown]
